FAERS Safety Report 7340273-9 (Version None)
Quarter: 2011Q1

REPORT INFORMATION
  Report Type: 
  Country: None (occurrence: None)
  Receive Date: 20110309
  Receipt Date: 20110301
  Transmission Date: 20110831
  Serious: Yes (Hospitalization)
  Sender: FDA-Public Use
  Company Number: FR-BIOGENIDEC-2010BI035278

PATIENT
  Age: 39 Year
  Sex: Female

DRUGS (8)
  1. LIORESAL [Concomitant]
  2. RIVOTRIL [Concomitant]
  3. TYSABRI [Suspect]
     Indication: RELAPSING-REMITTING MULTIPLE SCLEROSIS
     Route: 042
     Dates: start: 20070701, end: 20100929
  4. DITROPAN [Concomitant]
  5. PREVISCAN [Concomitant]
     Indication: DEEP VEIN THROMBOSIS
  6. MANTADIX [Concomitant]
  7. XATRAL [Concomitant]
  8. NEURONTIN [Concomitant]

REACTIONS (2)
  - EPILEPSY [None]
  - PROGRESSIVE MULTIFOCAL LEUKOENCEPHALOPATHY [None]
